FAERS Safety Report 8807857 (Version 4)
Quarter: 2012Q4

REPORT INFORMATION
  Report Type: 
  Country: JP (occurrence: JP)
  Receive Date: 20120925
  Receipt Date: 20121120
  Transmission Date: 20130627
  Serious: Yes (Hospitalization)
  Sender: FDA-Public Use
  Company Number: JP-GLAXOSMITHKLINE-B0832098A

PATIENT
  Age: 46 Year
  Sex: Female

DRUGS (8)
  1. LAMICTAL [Suspect]
     Indication: DEPRESSION
     Dosage: 25MG Per day
     Route: 048
     Dates: start: 20111108, end: 20120306
  2. LAMICTAL [Suspect]
     Indication: DEPRESSION
     Dosage: 50MG Per day
     Route: 048
     Dates: start: 20120307, end: 20120425
  3. LAMICTAL [Suspect]
     Indication: DEPRESSION
     Dosage: 100MG Per day
     Route: 048
     Dates: start: 20120426, end: 20120510
  4. LAMICTAL [Suspect]
     Indication: DEPRESSION
     Dosage: 50MG Per day
     Route: 048
     Dates: start: 20120511, end: 20120905
  5. TETRAMIDE [Concomitant]
     Dosage: 5MG Per day
     Route: 048
     Dates: start: 20111220
  6. ANAFRANIL [Concomitant]
     Dosage: 25MG Per day
     Route: 048
     Dates: start: 20111220, end: 20120425
  7. ANAFRANIL [Concomitant]
     Dosage: 25MG Per day
     Route: 048
     Dates: start: 20120706
  8. DEPAS [Concomitant]
     Dosage: 1MG Per day
     Route: 048
     Dates: start: 20111108

REACTIONS (5)
  - Erythema nodosum [Recovering/Resolving]
  - Drug reaction with eosinophilia and systemic symptoms [Recovered/Resolved]
  - Erythema [Unknown]
  - Pain [Unknown]
  - Pyrexia [Unknown]
